FAERS Safety Report 14964783 (Version 1)
Quarter: 2018Q2

REPORT INFORMATION
  Report Type: Spontaneous
  Country: FR (occurrence: FR)
  Receive Date: 20180601
  Receipt Date: 20180601
  Transmission Date: 20180711
  Serious: Yes (Disabling)
  Sender: FDA-Public Use
  Company Number: FR-009507513-1805FRA011259

PATIENT
  Age: 84 Year
  Sex: Female
  Weight: 65 kg

DRUGS (3)
  1. STROMECTOL [Suspect]
     Active Substance: IVERMECTIN
     Dosage: 5 TABLETS
     Route: 048
     Dates: start: 20180507
  2. STROMECTOL [Suspect]
     Active Substance: IVERMECTIN
     Indication: FILARIASIS
     Dosage: 5 TABLETS
     Route: 048
     Dates: start: 20180518
  3. STROMECTOL [Suspect]
     Active Substance: IVERMECTIN
     Dosage: 5 TABLETS ONCE EVERY 6 MONTHS
     Route: 048
     Dates: start: 201711

REACTIONS (9)
  - Myalgia [Unknown]
  - Arthralgia [Unknown]
  - Dyspnoea [Unknown]
  - Off label use [Unknown]
  - Pain in extremity [Unknown]
  - Nausea [Unknown]
  - Drug ineffective [Unknown]
  - Abdominal pain [Unknown]
  - Dizziness [Unknown]

NARRATIVE: CASE EVENT DATE: 201711
